FAERS Safety Report 6565318-5 (Version None)
Quarter: 2010Q1

REPORT INFORMATION
  Report Type: 
  Country: None (occurrence: None)
  Receive Date: 20100201
  Receipt Date: 20100120
  Transmission Date: 20100710
  Serious: No
  Sender: FDA-Public Use
  Company Number: AU-ROCHE-682346

PATIENT
  Sex: Female

DRUGS (1)
  1. OSELTAMIVIR [Suspect]
     Route: 065
     Dates: start: 20090101, end: 20090101

REACTIONS (2)
  - NO ADVERSE EVENT [None]
  - PREGNANCY [None]
